FAERS Safety Report 5346720-6 (Version None)
Quarter: 2007Q2

REPORT INFORMATION
  Report Type: 
  Country: None (occurrence: None)
  Receive Date: 20070605
  Receipt Date: 20070524
  Transmission Date: 20071010
  Serious: Yes (Other)
  Sender: FDA-Public Use
  Company Number: NL-PFIZER INC-2007043448

PATIENT
  Sex: Male
  Weight: 85 kg

DRUGS (11)
  1. LYRICA [Suspect]
     Indication: DIABETIC FOOT
     Route: 048
  2. NEXIUM [Concomitant]
     Route: 048
  3. METFORMIN HCL [Concomitant]
     Route: 048
  4. PLAVIX [Concomitant]
     Route: 048
  5. ACETOSAL [Concomitant]
     Route: 048
  6. HYZAAR [Concomitant]
     Route: 048
  7. LIPITOR [Concomitant]
     Route: 048
  8. NOVORAPID [Concomitant]
     Route: 058
  9. LANTUS [Concomitant]
     Route: 058
  10. NORVASC [Concomitant]
     Route: 048
  11. EZETROL [Concomitant]
     Route: 048

REACTIONS (3)
  - BLOOD PRESSURE INCREASED [None]
  - DIZZINESS [None]
  - HEADACHE [None]
